FAERS Safety Report 8470943-0 (Version None)
Quarter: 2012Q2

REPORT INFORMATION
  Report Type: 
  Country: None (occurrence: None)
  Receive Date: 20120323
  Receipt Date: 20110822
  Transmission Date: 20120825
  Serious: Yes (Other)
  Sender: FDA-Public Use
  Company Number: 163-21880-11082772

PATIENT
  Age: 65 Year
  Sex: Male
  Weight: 115.6672 kg

DRUGS (1)
  1. REVLIMID [Suspect]
     Indication: MULTIPLE MYELOMA
     Dosage: 10 MG, DAILY FOR 21 DAYS ON, 7 DAYS OFF, PO
     Route: 048
     Dates: start: 20100301, end: 20110901

REACTIONS (1)
  - MALAISE [None]
